FAERS Safety Report 8552597-8 (Version None)
Quarter: 2012Q3

REPORT INFORMATION
  Report Type: 
  Country: None (occurrence: None)
  Receive Date: 20120723
  Receipt Date: 20120723
  Transmission Date: 20120928
  Serious: No
  Sender: FDA-Public Use
  Company Number: None

PATIENT
  Age: 45 Year
  Sex: Female
  Weight: 86.1834 kg

DRUGS (1)
  1. SERTRALINE HYDROCHLORIDE [Suspect]
     Indication: ANXIETY
     Dosage: 100 MG 1 X PER DAY PO
     Route: 048
     Dates: start: 20120601, end: 20120701

REACTIONS (7)
  - AGITATION [None]
  - PRODUCT SUBSTITUTION ISSUE [None]
  - ADVERSE EVENT [None]
  - CONDITION AGGRAVATED [None]
  - PRODUCT QUALITY ISSUE [None]
  - ANXIETY [None]
  - DRUG INEFFECTIVE [None]
